FAERS Safety Report 25084144 (Version 2)
Quarter: 2025Q1

REPORT INFORMATION
  Report Type: Spontaneous
  Country: IT (occurrence: IT)
  Receive Date: 20250317
  Receipt Date: 20250327
  Transmission Date: 20250409
  Serious: Yes (Disabling, Other)
  Sender: AUROBINDO
  Company Number: IT-AUROBINDO-AUR-APL-2025-013976

PATIENT
  Age: 40 Year
  Sex: Female

DRUGS (2)
  1. CEFUROXIME [Suspect]
     Active Substance: CEFUROXIME
     Indication: Product used for unknown indication
     Route: 065
  2. CEFUROXIME [Suspect]
     Active Substance: CEFUROXIME

REACTIONS (1)
  - Retinopathy [Recovering/Resolving]
